FAERS Safety Report 4471358-2 (Version None)
Quarter: 2004Q4

REPORT INFORMATION
  Report Type: 
  Country: None (occurrence: None)
  Receive Date: 20041006
  Receipt Date: 20040927
  Transmission Date: 20050328
  Serious: No
  Sender: FDA-Public Use
  Company Number: 2004UW20360

PATIENT
  Age: 54 Year
  Sex: Female

DRUGS (1)
  1. PRILOSEC [Suspect]
     Indication: DYSPEPSIA

REACTIONS (3)
  - COLON CANCER [None]
  - CONDITION AGGRAVATED [None]
  - OESOPHAGEAL PAIN [None]
